FAERS Safety Report 6050296-8 (Version None)
Quarter: 2009Q1

REPORT INFORMATION
  Report Type: 
  Country: None (occurrence: None)
  Receive Date: 20090126
  Receipt Date: 20090114
  Transmission Date: 20090719
  Serious: Yes (Disabling, Other)
  Sender: FDA-Public Use
  Company Number: NO-AMGEN-US329893

PATIENT
  Sex: Female

DRUGS (7)
  1. ENBREL [Suspect]
     Indication: PSORIATIC ARTHROPATHY
     Route: 065
     Dates: start: 20070926
  2. ARTHROTEC [Concomitant]
     Indication: PSORIATIC ARTHROPATHY
     Route: 048
  3. DIGITOXIN [Concomitant]
     Indication: ATRIAL FIBRILLATION
     Dosage: 0.1 MG, ONCE A DAY EXCEPT FOR SUNDAYS
  4. ALBYL-E [Concomitant]
     Indication: ATRIAL FIBRILLATION
     Route: 048
  5. LEVOXINE [Concomitant]
     Indication: HYPERTHYROIDISM
     Route: 048
  6. SELO-ZOK [Concomitant]
     Indication: ATRIAL FIBRILLATION
  7. ESIDRIX [Concomitant]
     Indication: ATRIAL FIBRILLATION
     Route: 048

REACTIONS (1)
  - RETINAL ARTERY EMBOLISM [None]
